FAERS Safety Report 5284252-4 (Version None)
Quarter: 2007Q2

REPORT INFORMATION
  Report Type: 
  Country: None (occurrence: None)
  Receive Date: 20070403
  Receipt Date: 20070326
  Transmission Date: 20071010
  Serious: Yes (Hospitalization)
  Sender: FDA-Public Use
  Company Number: PHEH2007US01738

PATIENT
  Age: 74 Year
  Sex: Male
  Weight: 89.795 kg

DRUGS (13)
  1. GANCICLOVIR [Concomitant]
     Dates: end: 20061201
  2. CYCLOSPORINE [Suspect]
     Indication: RENAL TRANSPLANT
     Dosage: UNK, UNK
     Route: 048
     Dates: start: 20060101, end: 20061201
  3. CYCLOSPORINE [Suspect]
     Dosage: 100 MG, BID
     Route: 048
  4. NIASPAN [Suspect]
     Indication: HYPERLIPIDAEMIA
     Dosage: 500 MG, UNK
     Route: 048
     Dates: start: 20061215, end: 20061201
  5. ZOCOR [Interacting]
     Indication: HYPERLIPIDAEMIA
     Dosage: 400 MG, QD
     Route: 048
     Dates: start: 20020101, end: 20070101
  6. LYRICA [Concomitant]
     Indication: NEURALGIA
     Route: 048
  7. NOVOLOG [Concomitant]
     Indication: DIABETES MELLITUS
     Dosage: SLIDING SCALE, PRN
     Route: 058
     Dates: start: 20060101, end: 20070101
  8. LANTUS [Concomitant]
     Indication: DIABETES MELLITUS
     Dosage: 16 U, QD
     Route: 058
     Dates: start: 20060101, end: 20070101
  9. MYFORTIC [Concomitant]
  10. OMEPRAZOLE [Concomitant]
     Route: 048
  11. LISINOPRIL [Concomitant]
     Route: 048
  12. BACTRIM [Concomitant]
     Route: 048
  13. TEMAZEPAM [Concomitant]
     Route: 048

REACTIONS (13)
  - ALANINE AMINOTRANSFERASE INCREASED [None]
  - ARTHRALGIA [None]
  - ASPARTATE AMINOTRANSFERASE INCREASED [None]
  - BACK PAIN [None]
  - BLOOD BILIRUBIN INCREASED [None]
  - BLOOD CREATINE PHOSPHOKINASE INCREASED [None]
  - DRUG INTERACTION [None]
  - HEPATITIS TOXIC [None]
  - HYPERSENSITIVITY [None]
  - MUSCLE SPASMS [None]
  - MYALGIA [None]
  - NEURALGIA [None]
  - RHABDOMYOLYSIS [None]
